FAERS Safety Report 4655283-X (Version None)
Quarter: 2005Q2

REPORT INFORMATION
  Report Type: 
  Country: None (occurrence: None)
  Receive Date: 20050506
  Receipt Date: 20050429
  Transmission Date: 20051028
  Serious: Yes (Hospitalization)
  Sender: FDA-Public Use
  Company Number: US-JNJFOC-20050500623

PATIENT
  Sex: Female

DRUGS (2)
  1. DURAGESIC-100 [Suspect]
     Route: 062
  2. OXYCODONE HCL [Concomitant]
     Route: 049

REACTIONS (2)
  - SPINAL DISORDER [None]
  - WOUND DEBRIDEMENT [None]
